FAERS Safety Report 4755927-8 (Version None)
Quarter: 2005Q3

REPORT INFORMATION
  Report Type: 
  Country: None (occurrence: None)
  Receive Date: 20050830
  Receipt Date: 20050823
  Transmission Date: 20060218
  Serious: Yes (Death)
  Sender: FDA-Public Use
  Company Number: US-JNJFOC-20041105360

PATIENT
  Sex: Male

DRUGS (17)
  1. INFLIXIMAB [Suspect]
     Route: 042
  2. INFLIXIMAB [Suspect]
     Route: 042
  3. INFLIXIMAB [Suspect]
     Indication: RHEUMATOID ARTHRITIS
     Route: 042
  4. ENBREL [Concomitant]
     Route: 058
  5. METHOTREXATE [Concomitant]
     Route: 048
  6. PREDNISONE [Concomitant]
  7. FOLIC ACID [Concomitant]
     Route: 048
  8. ATENOLOL [Concomitant]
     Route: 048
  9. ZOCOR [Concomitant]
     Route: 048
  10. DARVOCET [Concomitant]
     Route: 048
  11. DARVOCET [Concomitant]
     Dosage: 100-650 MG TABLETS, 1 PO Q 4-6 HOURS PRN PAIN
     Route: 048
  12. PLAVIX [Concomitant]
     Dosage: AT HS
     Route: 048
  13. B-50 [Concomitant]
     Route: 048
  14. CALCIUM GLUCONATE [Concomitant]
     Route: 048
  15. MICRO-K [Concomitant]
     Route: 048
  16. HYDROCHLOROTHIAZIDE [Concomitant]
     Route: 048
  17. MEGA MULTIPLE/CHELATED MINERAL TAB [Concomitant]

REACTIONS (1)
  - SMALL CELL LUNG CANCER EXTENSIVE STAGE [None]
